FAERS Safety Report 9126980 (Version 2)
Quarter: 2013Q1

REPORT INFORMATION
  Report Type: Report from Study
  Country: CA (occurrence: CA)
  Receive Date: 20130228
  Receipt Date: 20130306
  Transmission Date: 20140127
  Serious: Yes (Death, Hospitalization, Other)
  Sender: FDA-Public Use
  Company Number: PHHY2013CA019521

PATIENT
  Age: 52 Year
  Sex: Male

DRUGS (2)
  1. CLOZARIL [Suspect]
     Indication: AGITATION
     Dosage: 125 MG, UNK
     Route: 048
     Dates: start: 1999
  2. CLOZARIL [Suspect]
     Dosage: 75 MG, UNK
     Route: 048
     Dates: start: 20121107, end: 2012

REACTIONS (6)
  - Pneumonia aspiration [Fatal]
  - Lung consolidation [Fatal]
  - Oxygen saturation decreased [Fatal]
  - Cellulitis [Unknown]
  - Agitation [Unknown]
  - Aspartate aminotransferase increased [Unknown]
